FAERS Safety Report 4648675-6 (Version None)
Quarter: 2005Q2

REPORT INFORMATION
  Report Type: 
  Country: None (occurrence: None)
  Receive Date: 20050427
  Receipt Date: 20050421
  Transmission Date: 20051028
  Serious: Yes (Hospitalization)
  Sender: FDA-Public Use
  Company Number: ESWYE587614APR05

PATIENT
  Age: 63 Year
  Sex: Female

DRUGS (6)
  1. RAPAMUNE [Suspect]
     Indication: PROPHYLAXIS AGAINST TRANSPLANT REJECTION
     Dosage: SEE IMAGE
     Route: 048
     Dates: start: 20050408, end: 20050408
  2. RAPAMUNE [Suspect]
     Indication: PROPHYLAXIS AGAINST TRANSPLANT REJECTION
     Dosage: SEE IMAGE
     Route: 048
     Dates: start: 20050419, end: 20050420
  3. TACROLIMUS  (TACROLIMUS) [Concomitant]
  4. CORTICOSTEROIDS (CORTICOSTEROIDS) [Concomitant]
  5. MYCOPHENOLATE MOFETIL (MYCOPHENOLATE FOFETIL) [Concomitant]
  6. SOLU-MODERIN (METHYLPREDNISOLONE SODIUM SUCCINATE) [Concomitant]

REACTIONS (12)
  - ANTIBODY TEST POSITIVE [None]
  - COMPLICATIONS OF TRANSPLANTED KIDNEY [None]
  - DRUG LEVEL INCREASED [None]
  - HAEMODIALYSIS [None]
  - HAEMORRHAGE [None]
  - KIDNEY TRANSPLANT REJECTION [None]
  - NEPHROPATHY TOXIC [None]
  - PERITONEAL DIALYSIS [None]
  - PERITONEAL DISORDER [None]
  - POST PROCEDURAL COMPLICATION [None]
  - RENAL IMPAIRMENT [None]
  - ULTRASOUND KIDNEY ABNORMAL [None]
